FAERS Safety Report 7720214-2 (Version None)
Quarter: 2011Q3

REPORT INFORMATION
  Report Type: 
  Country: None (occurrence: None)
  Receive Date: 20110826
  Receipt Date: 20110826
  Transmission Date: 20111222
  Serious: No
  Sender: FDA-Public Use
  Company Number: None

PATIENT
  Sex: Female
  Weight: 83.0083 kg

DRUGS (4)
  1. FLEXERIL [Concomitant]
  2. BUPROPRION HCL [Suspect]
     Indication: BIPOLAR DISORDER
     Dosage: BUPROPION XL 150MG QDAY PO
     Route: 048
  3. LITHIUM CARBONATE [Concomitant]
  4. TRAZODONE HYDROCHLORIDE [Concomitant]

REACTIONS (4)
  - DISEASE RECURRENCE [None]
  - DEPRESSION [None]
  - DRUG EFFECT DECREASED [None]
  - PRODUCT SUBSTITUTION ISSUE [None]
